FAERS Safety Report 10453401 (Version 1)
Quarter: 2014Q3

REPORT INFORMATION
  Report Type: Report from Study
  Country: CO (occurrence: CO)
  Receive Date: 20140915
  Receipt Date: 20140915
  Transmission Date: 20150326
  Serious: Yes (Death)
  Sender: FDA-Public Use
  Company Number: CO-ABBVIE-14K-036-1283268-00

PATIENT
  Age: 86 Year
  Sex: Male
  Weight: 59 kg

DRUGS (2)
  1. HUMIRA [Suspect]
     Active Substance: ADALIMUMAB
     Indication: PSORIASIS
     Route: 058
     Dates: start: 20120428, end: 20140827
  2. LOSARTAN [Concomitant]
     Active Substance: LOSARTAN
     Indication: PRODUCT USED FOR UNKNOWN INDICATION

REACTIONS (7)
  - Respiratory distress [Fatal]
  - Abasia [Fatal]
  - Renal impairment [Fatal]
  - Choking sensation [Fatal]
  - General physical health deterioration [Fatal]
  - Lung disorder [Fatal]
  - Cardiac failure [Fatal]

NARRATIVE: CASE EVENT DATE: 20140903
